FAERS Safety Report 18429442 (Version 1)
Quarter: 2020Q4

REPORT INFORMATION
  Report Type: Spontaneous
  Country: HR (occurrence: HR)
  Receive Date: 20201026
  Receipt Date: 20201026
  Transmission Date: 20210114
  Serious: Yes (Other)
  Sender: FDA-Public Use
  Company Number: HR-PFIZER INC-2020410695

PATIENT
  Age: 31 Year
  Sex: Male

DRUGS (6)
  1. LYRICA [Suspect]
     Active Substance: PREGABALIN
     Dosage: 2100 MG, 1X/DAY
     Route: 048
     Dates: start: 202009, end: 202009
  2. PRAXITEN [Suspect]
     Active Substance: OXAZEPAM
     Dosage: 45 MG, 1X/DAY
     Route: 048
     Dates: start: 202009, end: 202009
  3. PRAZINE [PROMAZINE HYDROCHLORIDE] [Suspect]
     Active Substance: PROMAZINE HYDROCHLORIDE
     Dosage: 2800 MG, 1X/DAY
     Route: 048
     Dates: start: 202009, end: 202009
  4. TOPAMAX [Suspect]
     Active Substance: TOPIRAMATE
     Dosage: 350 MG, 1X/DAY
     Route: 048
     Dates: start: 202009, end: 202009
  5. SEROQUEL XR [Suspect]
     Active Substance: QUETIAPINE FUMARATE
     Dosage: 5100 MG, 1X/DAY
     Route: 048
     Dates: start: 202009, end: 202009
  6. RISSET [Suspect]
     Active Substance: RISPERIDONE
     Dosage: 12 MG, 1X/DAY
     Route: 048
     Dates: start: 202009, end: 202009

REACTIONS (3)
  - Suicide attempt [Unknown]
  - Somnolence [Unknown]
  - Intentional overdose [Unknown]

NARRATIVE: CASE EVENT DATE: 202009
